FAERS Safety Report 14720454 (Version 1)
Quarter: 2018Q2

REPORT INFORMATION
  Report Type: Spontaneous
  Country: EG (occurrence: EG)
  Receive Date: 20180405
  Receipt Date: 20180405
  Transmission Date: 20180711
  Serious: Yes (Disabling)
  Sender: FDA-Public Use
  Company Number: EG-NOVOPROD-593600

PATIENT
  Age: 50 Year
  Sex: Female

DRUGS (3)
  1. HUMULIN NOS [Concomitant]
     Active Substance: INSULIN HUMAN
     Indication: TYPE 1 DIABETES MELLITUS
     Dosage: 3 U, BID (3 U PER BREAKFAST AND 3 U PER LUNCH)
     Route: 058
  2. MIXTARD HUMAN 70/30 [Suspect]
     Active Substance: INSULIN HUMAN
     Indication: TYPE 1 DIABETES MELLITUS
     Dosage: 4.5 U, QD (EVERY NIGHT BEFORE DINNER)
     Route: 058
     Dates: end: 201704
  3. MIXTARD HUMAN 70/30 [Suspect]
     Active Substance: INSULIN HUMAN
     Dosage: 4.5 U, QD (EVERY NIGHT BEFORE DINNER)
     Route: 058
     Dates: start: 2017

REACTIONS (1)
  - Leg amputation [Not Recovered/Not Resolved]
